FAERS Safety Report 18617408 (Version 1)
Quarter: 2020Q4

REPORT INFORMATION
  Report Type: Spontaneous
  Country: US (occurrence: US)
  Receive Date: 20201214
  Receipt Date: 20201214
  Transmission Date: 20210114
  Serious: Yes (Death)
  Sender: FDA-Public Use
  Company Number: None

PATIENT
  Age: 79 Year
  Sex: Female

DRUGS (5)
  1. CAPECITABINE. [Suspect]
     Active Substance: CAPECITABINE
     Indication: BREAST CANCER
     Route: 048
     Dates: start: 20200723, end: 20201128
  2. LOSARTAN HCTZ 50/12.5 [Concomitant]
     Dates: start: 20190702
  3. MACROBID 100MG [Concomitant]
     Dates: start: 20201108, end: 20201113
  4. NORCO [Concomitant]
     Active Substance: ACETAMINOPHEN\HYDROCODONE BITARTRATE
     Dates: start: 20190911
  5. FUROSEMIDE 40MG [Concomitant]
     Active Substance: FUROSEMIDE
     Dates: start: 20201121

REACTIONS (1)
  - Death [None]

NARRATIVE: CASE EVENT DATE: 20201212
